FAERS Safety Report 4302094-0 (Version None)
Quarter: 2004Q1

REPORT INFORMATION
  Report Type: 
  Country: None (occurrence: None)
  Receive Date: 20040220
  Receipt Date: 20040217
  Transmission Date: 20041129
  Serious: Yes (Death, Other)
  Sender: FDA-Public Use
  Company Number: AMAN20030006

PATIENT
  Age: 79 Year
  Sex: Female

DRUGS (8)
  1. AMANTADINE HYROCHLORIDE 50MG [Suspect]
     Indication: PARKINSON'S DISEASE
     Dosage: 50 MG QID PO
     Route: 048
     Dates: end: 20030422
  2. SINEMET [Suspect]
     Indication: PARKINSON'S DISEASE
     Dosage: 1 TAB TID PO
     Route: 048
  3. ALPRAZOLAM [Concomitant]
  4. VALPROATE SODIUM [Concomitant]
  5. OMEPRAZOLE [Concomitant]
  6. ASPIRIN [Concomitant]
  7. ISOSORBIDE MONONITRATE [Concomitant]
  8. MAGNESIUM OXIDE [Concomitant]

REACTIONS (12)
  - AGGRESSION [None]
  - BLOOD CREATININE INCREASED [None]
  - BLOOD UREA INCREASED [None]
  - CONDITION AGGRAVATED [None]
  - CULTURE POSITIVE [None]
  - DEHYDRATION [None]
  - DEPRESSED LEVEL OF CONSCIOUSNESS [None]
  - DRUG INTERACTION [None]
  - DRUG LEVEL INCREASED [None]
  - PARKINSON'S DISEASE [None]
  - SEPSIS [None]
  - SOMNOLENCE [None]
